FAERS Safety Report 24812452 (Version 2)
Quarter: 2025Q1

REPORT INFORMATION
  Report Type: Report from Study
  Country: JP (occurrence: JP)
  Receive Date: 20250106
  Receipt Date: 20250319
  Transmission Date: 20250408
  Serious: Yes (Life-Threatening, Hospitalization, Other)
  Sender: AMGEN
  Company Number: JP-Vifor (International) Inc.-VIT-2024-05168

PATIENT
  Age: 74 Year
  Sex: Male
  Weight: 52.5 kg

DRUGS (22)
  1. AVACOPAN [Suspect]
     Active Substance: AVACOPAN
     Indication: Microscopic polyangiitis
     Dosage: 30 MG B.I.D.
     Route: 048
     Dates: start: 20230502
  2. DECADRON [Suspect]
     Active Substance: DEXAMETHASONE
     Indication: Microscopic polyangiitis
     Dosage: .5,MG,QD
     Route: 048
     Dates: end: 20230621
  3. DECADRON [Suspect]
     Active Substance: DEXAMETHASONE
     Dosage: 0.4 UNK
     Route: 048
     Dates: start: 20230622, end: 20240225
  4. DECADRON [Suspect]
     Active Substance: DEXAMETHASONE
     Dosage: 0.5 MG, QD
     Route: 048
     Dates: start: 20240226, end: 20240331
  5. DECADRON [Suspect]
     Active Substance: DEXAMETHASONE
     Dosage: 0.8 MG, QD
     Route: 048
     Dates: start: 20240401, end: 20240421
  6. DECADRON [Suspect]
     Active Substance: DEXAMETHASONE
     Dosage: 0.7 MG, QD
     Route: 048
     Dates: start: 20240422, end: 20240728
  7. DECADRON [Suspect]
     Active Substance: DEXAMETHASONE
     Dosage: 0.6 MG, QD
     Route: 048
     Dates: start: 20240729, end: 20240901
  8. DECADRON [Suspect]
     Active Substance: DEXAMETHASONE
     Dosage: 0.5 MG, QD
     Route: 048
     Dates: start: 20240902, end: 20241027
  9. DECADRON [Suspect]
     Active Substance: DEXAMETHASONE
     Dosage: 0.4 MG, QD
     Route: 048
     Dates: start: 20241028, end: 20241201
  10. DECADRON [Suspect]
     Active Substance: DEXAMETHASONE
     Dosage: 0.3 UNK
     Route: 048
     Dates: start: 20241202
  11. CYCLOPHOSPHAMIDE [Concomitant]
     Active Substance: CYCLOPHOSPHAMIDE
     Indication: Microscopic polyangiitis
     Route: 040
     Dates: start: 20230525, end: 20230525
  12. CYCLOPHOSPHAMIDE [Concomitant]
     Active Substance: CYCLOPHOSPHAMIDE
     Route: 040
     Dates: start: 20230607, end: 20230607
  13. CYCLOPHOSPHAMIDE [Concomitant]
     Active Substance: CYCLOPHOSPHAMIDE
     Route: 040
     Dates: start: 20230621, end: 20230621
  14. CYCLOPHOSPHAMIDE [Concomitant]
     Active Substance: CYCLOPHOSPHAMIDE
     Route: 040
     Dates: start: 20230721, end: 20230721
  15. CYCLOPHOSPHAMIDE [Concomitant]
     Active Substance: CYCLOPHOSPHAMIDE
     Route: 040
     Dates: start: 20230815, end: 20230815
  16. CYCLOPHOSPHAMIDE [Concomitant]
     Active Substance: CYCLOPHOSPHAMIDE
     Route: 040
     Dates: start: 20230906, end: 20230906
  17. RITUXIMAB [Concomitant]
     Active Substance: RITUXIMAB
     Indication: Microscopic polyangiitis
     Route: 041
     Dates: start: 20230502, end: 20230502
  18. RITUXIMAB [Concomitant]
     Active Substance: RITUXIMAB
     Route: 040
     Dates: start: 20230509, end: 20230509
  19. RITUXIMAB [Concomitant]
     Active Substance: RITUXIMAB
     Route: 040
     Dates: start: 20230516, end: 20230516
  20. RITUXIMAB [Concomitant]
     Active Substance: RITUXIMAB
     Route: 040
     Dates: start: 20230523, end: 20230523
  21. SULFAMETHOXAZOLE\TRIMETHOPRIM [Concomitant]
     Active Substance: SULFAMETHOXAZOLE\TRIMETHOPRIM
     Indication: Antifungal prophylaxis
     Dosage: PERORAL MEDICINE
     Route: 048
  22. DENOSUMAB [Concomitant]
     Active Substance: DENOSUMAB
     Indication: Prophylaxis
     Route: 058
     Dates: start: 20231023

REACTIONS (2)
  - Pneumonia bacterial [Recovering/Resolving]
  - Prostate cancer [Recovering/Resolving]

NARRATIVE: CASE EVENT DATE: 20230801
